FAERS Safety Report 19072999 (Version 2)
Quarter: 2021Q2

REPORT INFORMATION
  Report Type: Spontaneous
  Country: JP (occurrence: JP)
  Receive Date: 20210330
  Receipt Date: 20210618
  Transmission Date: 20210717
  Serious: Yes (Death, Hospitalization, Other)
  Sender: FDA-Public Use
  Company Number: JP-EXELIXIS-CABO-21038920

PATIENT
  Age: 78 Year
  Sex: Male
  Weight: 59.7 kg

DRUGS (5)
  1. STAYBLA [Concomitant]
     Active Substance: IMIDAFENACIN
     Indication: DYSURIA
     Dosage: 0.1 MILLIGRAM, BID
     Route: 048
     Dates: start: 20201201, end: 20210202
  2. THYRADIN S [Concomitant]
     Active Substance: LEVOTHYROXINE SODIUM
     Indication: HYPOTHYROIDISM
     Dosage: 50 MICROGRAM, QD
     Route: 048
     Dates: end: 20210202
  3. CABOMETYX [Suspect]
     Active Substance: CABOZANTINIB S-MALATE
     Indication: HEPATOCELLULAR CARCINOMA
     Dosage: 60 MG, QD
     Route: 048
     Dates: start: 20210115, end: 20210125
  4. CABOMETYX [Suspect]
     Active Substance: CABOZANTINIB S-MALATE
     Dosage: 40 MG, QD
     Route: 048
     Dates: start: 20210126, end: 20210202
  5. REZALTAS [Concomitant]
     Active Substance: AZELNIDIPINE\OLMESARTAN MEDOXOMIL
     Indication: HYPERTENSION
     Dosage: 1 DOSAGE FORM, QD
     Route: 048
     Dates: start: 20201222, end: 20210202

REACTIONS (5)
  - Disease progression [Fatal]
  - Hepatic function abnormal [Not Recovered/Not Resolved]
  - Hepatocellular carcinoma [Fatal]
  - Platelet count decreased [Not Recovered/Not Resolved]
  - Fall [Unknown]

NARRATIVE: CASE EVENT DATE: 20210122
